FAERS Safety Report 5311605-8 (Version None)
Quarter: 2007Q2

REPORT INFORMATION
  Report Type: 
  Country: None (occurrence: None)
  Receive Date: 20070430
  Receipt Date: 20070425
  Transmission Date: 20071010
  Serious: Yes (Other)
  Sender: FDA-Public Use
  Company Number: LB-AVENTIS-200713685GDDC

PATIENT
  Sex: Male
  Weight: 70 kg

DRUGS (4)
  1. LANTUS [Suspect]
     Route: 058
  2. DIAMICRON [Concomitant]
     Dosage: DOSE QUANTITY: 2
     Route: 048
  3. CYMBALTA [Concomitant]
     Indication: DEPRESSION
     Dosage: DOSE QUANTITY: 1
     Route: 048
  4. QUIBRON-T [Concomitant]

REACTIONS (2)
  - HYPOGLYCAEMIC COMA [None]
  - PNEUMONIA ASPIRATION [None]
